FAERS Safety Report 4658731-4 (Version None)
Quarter: 2005Q2

REPORT INFORMATION
  Report Type: 
  Country: None (occurrence: None)
  Receive Date: 20050509
  Receipt Date: 20050428
  Transmission Date: 20051028
  Serious: No
  Sender: FDA-Public Use
  Company Number: 2005AP02530

PATIENT
  Age: 60 Year
  Sex: Male

DRUGS (2)
  1. CASODEX [Suspect]
     Indication: PROSTATE CANCER
     Dosage: 80 MG DAILY PO
     Route: 048
  2. HARNAL [Concomitant]

REACTIONS (3)
  - GASTRITIS [None]
  - HAEMOPTYSIS [None]
  - STRESS [None]
